FAERS Safety Report 9748757 (Version 2)
Quarter: 2013Q4

REPORT INFORMATION
  Report Type: Spontaneous
  Country: JP (occurrence: JP)
  Receive Date: 20131212
  Receipt Date: 20131219
  Transmission Date: 20140711
  Serious: Yes (Hospitalization, Other)
  Sender: FDA-Public Use
  Company Number: JP-B.I. PHARMACEUTICALS,INC./RIDGEFIELD-2013-BI-41665NB

PATIENT
  Age: 68 Year
  Sex: Male

DRUGS (6)
  1. PRAZAXA [Suspect]
     Dosage: 300 MG
     Route: 048
     Dates: start: 201206
  2. ARTIST / CARVEDILOL [Concomitant]
     Dosage: 10 MG
     Route: 048
  3. PREDNISOLONE / PREDNISOLONE [Concomitant]
     Dosage: 5 MG
     Route: 065
  4. MAGMITT / MAGNESIUM OXIDE [Concomitant]
     Dosage: 330 MG
     Route: 065
  5. ADALAT-CR / NIFEDIPINE [Concomitant]
     Route: 065
  6. TAKEPRON / LANSOPRAZOLE [Concomitant]
     Route: 065

REACTIONS (4)
  - Skull fracture [Recovered/Resolved]
  - Cerebral infarction [Unknown]
  - Subarachnoid haemorrhage [Unknown]
  - Fall [Not Recovered/Not Resolved]
